FAERS Safety Report 15607319 (Version 1)
Quarter: 2018Q4

REPORT INFORMATION
  Report Type: Report from Study
  Country: ES (occurrence: ES)
  Receive Date: 20181112
  Receipt Date: 20181112
  Transmission Date: 20190205
  Serious: Yes (Hospitalization)
  Sender: FDA-Public Use
  Company Number: ES-PFIZER INC-2018455875

PATIENT
  Age: 22 Month
  Sex: Female
  Weight: 10.7 kg

DRUGS (7)
  1. CYCLOPHOSPHAMID [Suspect]
     Active Substance: CYCLOPHOSPHAMIDE
     Indication: NON-HODGKIN^S LYMPHOMA
     Dosage: 96 MG, UNK (EVERY 18H)
     Route: 042
     Dates: start: 20170910, end: 20170912
  2. VINCRISTINE SULFATE. [Suspect]
     Active Substance: VINCRISTINE SULFATE
     Indication: NON-HODGKIN^S LYMPHOMA
     Dosage: 0.7 MG, 1X/DAY
     Route: 042
     Dates: start: 20170913, end: 20170914
  3. METHOTREXATE SODIUM. [Suspect]
     Active Substance: METHOTREXATE SODIUM
     Indication: NON-HODGKIN^S LYMPHOMA
     Dosage: 48 MG, 1X/DAY
     Route: 042
     Dates: start: 20170909, end: 20170910
  4. ONCASPAR [Suspect]
     Active Substance: PEGASPARGASE
     Indication: NON-HODGKIN^S LYMPHOMA
     Dosage: 48 MG, 1X/DAY
     Route: 030
     Dates: start: 20170913, end: 20170913
  5. DEXAMETHASONE. [Suspect]
     Active Substance: DEXAMETHASONE
     Indication: NON-HODGKIN^S LYMPHOMA
     Dosage: 4.8 MG, UNK
     Route: 042
     Dates: start: 20170906, end: 20170914
  6. CYTARABINE. [Suspect]
     Active Substance: CYTARABINE
     Indication: NON-HODGKIN^S LYMPHOMA
     Dosage: 16 MG, 1X/DAY
     Route: 042
     Dates: start: 20170912, end: 20170913
  7. MESNA. [Concomitant]
     Active Substance: MESNA
     Indication: PROPHYLAXIS
     Dosage: 34 MG, 1X/DAY
     Route: 042
     Dates: start: 20170910, end: 20170913

REACTIONS (3)
  - Pyrexia [Recovered/Resolved]
  - Pancytopenia [Recovered/Resolved]
  - Ecthyma [Recovered/Resolved]

NARRATIVE: CASE EVENT DATE: 20170914
